FAERS Safety Report 22637038 (Version 1)
Quarter: 2023Q2

REPORT INFORMATION
  Report Type: Spontaneous
  Country: US (occurrence: US)
  Receive Date: 20230626
  Receipt Date: 20230626
  Transmission Date: 20230722
  Serious: Yes (Other)
  Sender: FDA-Public Use
  Company Number: US-ARBOR PHARMACEUTICALS, LLC-US-2023ARB004339

PATIENT
  Sex: Male

DRUGS (2)
  1. GABAPENTIN ENACARBIL [Suspect]
     Active Substance: GABAPENTIN ENACARBIL
     Indication: Myofascial pain syndrome
     Dosage: 300 MG, BID
     Route: 048
  2. ACETAMINOPHEN [Concomitant]
     Active Substance: ACETAMINOPHEN
     Indication: Myofascial pain syndrome
     Dosage: 650 MG, PRN, EVERY 6 HOURS AS NEEDED
     Route: 048

REACTIONS (1)
  - Atrial fibrillation [Unknown]
